FAERS Safety Report 10810540 (Version 1)
Quarter: 2015Q1

REPORT INFORMATION
  Report Type: Spontaneous
  Country: US (occurrence: None)
  Receive Date: 20150212
  Receipt Date: 20150212
  Transmission Date: 20150721
  Serious: Yes (Other)
  Sender: FDA-Public Use
  Company Number: 8008015D

PATIENT
  Age: 25 Year
  Sex: Female

DRUGS (6)
  1. LITHIUM [Suspect]
     Active Substance: LITHIUM CARBONATE
     Indication: PRODUCT USED FOR UNKNOWN INDICATION
  2. AMBIEN [Concomitant]
     Active Substance: ZOLPIDEM TARTRATE
     Indication: PRODUCT USED FOR UNKNOWN INDICATION
  3. CLONAZEPAM (CLONAZEPAM) [Concomitant]
     Active Substance: CLONAZEPAM
     Indication: PRODUCT USED FOR UNKNOWN INDICATION
  4. SEROQUEL [Suspect]
     Active Substance: QUETIAPINE FUMARATE
     Indication: PRODUCT USED FOR UNKNOWN INDICATION
  5. LEVOTHYROXINE (LEVOTHYROXINE) [Suspect]
     Active Substance: LEVOTHYROXINE
     Indication: PRODUCT USED FOR UNKNOWN INDICATION
  6. CITALOPRAM (CITALOPRAM) [Suspect]
     Active Substance: CITALOPRAM HYDROBROMIDE
     Indication: PRODUCT USED FOR UNKNOWN INDICATION

REACTIONS (13)
  - Encephalitis autoimmune [None]
  - Toxic encephalopathy [None]
  - Unresponsive to stimuli [None]
  - Hashimoto^s encephalopathy [None]
  - Diabetes insipidus [None]
  - Electrolyte imbalance [None]
  - Blood potassium decreased [None]
  - Seizure [None]
  - Hyperthermia [None]
  - Toxicity to various agents [None]
  - Hyperthyroidism [None]
  - Thyroiditis [None]
  - Blood sodium increased [None]
